FAERS Safety Report 9790606 (Version 1)
Quarter: 2013Q4

REPORT INFORMATION
  Report Type: Report from Study
  Country: FR (occurrence: FR)
  Receive Date: 20131231
  Receipt Date: 20131231
  Transmission Date: 20140711
  Serious: Yes (Other)
  Sender: FDA-Public Use
  Company Number: PHHO2013FR016603

PATIENT
  Sex: 0

DRUGS (7)
  1. NEORAL [Suspect]
     Indication: HEART TRANSPLANT
     Dosage: 175
     Route: 048
     Dates: start: 19940427
  2. SOLUPRED [Concomitant]
     Dosage: 7.5
     Route: 048
     Dates: start: 20090831
  3. LASIX [Concomitant]
     Dosage: 20
     Route: 048
     Dates: start: 19940427
  4. KENZEN [Concomitant]
     Dosage: 8
     Route: 048
     Dates: start: 20060329
  5. PROCORALAN [Concomitant]
     Dosage: 10
     Route: 048
     Dates: start: 20101124
  6. PLAVIX [Concomitant]
     Dosage: 75
     Route: 048
     Dates: start: 20040429
  7. KARDEGIC [Concomitant]
     Dosage: 75
     Route: 048

REACTIONS (3)
  - Hepatic fibrosis [Not Recovered/Not Resolved]
  - Hepatic congestion [Not Recovered/Not Resolved]
  - Cardiac cirrhosis [Not Recovered/Not Resolved]
